FAERS Safety Report 8176733-0 (Version None)
Quarter: 2012Q1

REPORT INFORMATION
  Report Type: 
  Country: None (occurrence: None)
  Receive Date: 20120301
  Receipt Date: 20120221
  Transmission Date: 20120608
  Serious: Yes (Death)
  Sender: FDA-Public Use
  Company Number: FR-PFIZER INC-2012053677

PATIENT
  Age: 53 Year
  Sex: Female

DRUGS (11)
  1. AMBISOME [Suspect]
     Indication: SYSTEMIC INFLAMMATORY RESPONSE SYNDROME
     Dosage: UNK
     Route: 042
     Dates: start: 20120104
  2. TOBRAMYCIN [Suspect]
     Dosage: UNK
     Route: 042
     Dates: start: 20111224
  3. RAMIPRIL [Concomitant]
  4. ASPIRIN [Concomitant]
  5. PROPRANOLOL [Concomitant]
  6. PREDNISONE TAB [Concomitant]
     Dosage: UNK
  7. ATORVASTATIN [Concomitant]
  8. CEFTAZIDIME [Suspect]
     Indication: SYSTEMIC INFLAMMATORY RESPONSE SYNDROME
     Dosage: UNK
     Route: 042
     Dates: start: 20111224
  9. VANCOMYCIN HCL [Suspect]
     Indication: SYSTEMIC INFLAMMATORY RESPONSE SYNDROME
     Dosage: UNK
     Route: 042
     Dates: start: 20111219
  10. INSULIN [Concomitant]
  11. CANCIDAS [Suspect]
     Indication: SYSTEMIC INFLAMMATORY RESPONSE SYNDROME
     Dosage: UNK
     Route: 042
     Dates: start: 20111227

REACTIONS (1)
  - THROMBOCYTOPENIA [None]
